FAERS Safety Report 15488901 (Version 1)
Quarter: 2018Q4

REPORT INFORMATION
  Report Type: Spontaneous
  Country: DE (occurrence: DE)
  Receive Date: 20181011
  Receipt Date: 20181011
  Transmission Date: 20190205
  Serious: Yes (Other)
  Sender: FDA-Public Use
  Company Number: DE-PFIZER INC-2018404852

PATIENT
  Age: 59 Year
  Sex: Male

DRUGS (6)
  1. SEROQUEL [Suspect]
     Active Substance: QUETIAPINE FUMARATE
     Dosage: 800 MG
     Route: 065
  2. REMERGIL [Suspect]
     Active Substance: MIRTAZAPINE
     Dosage: 60 MG
     Route: 065
  3. ALLOPURINOL. [Concomitant]
     Active Substance: ALLOPURINOL
     Route: 065
  4. RIVOTRIL [Suspect]
     Active Substance: CLONAZEPAM
     Indication: BURNOUT SYNDROME
     Dosage: UNK
     Route: 065
  5. ZOLOFT [Suspect]
     Active Substance: SERTRALINE HYDROCHLORIDE
     Dosage: UNK
     Route: 065
  6. CIPRALEX [Suspect]
     Active Substance: ESCITALOPRAM OXALATE
     Dosage: 40 MG
     Route: 065

REACTIONS (13)
  - Catatonia [Unknown]
  - Serotonin syndrome [Unknown]
  - Blood uric acid increased [Recovered/Resolved]
  - Product use in unapproved indication [Unknown]
  - Dyskinesia [Not Recovered/Not Resolved]
  - Tremor [Not Recovered/Not Resolved]
  - Off label use [Unknown]
  - Disorientation [Unknown]
  - Fatigue [Unknown]
  - Suicidal ideation [Unknown]
  - Infection [Unknown]
  - Dental caries [Unknown]
  - Muscle spasms [Not Recovered/Not Resolved]
